FAERS Safety Report 10728909 (Version 1)
Quarter: 2015Q1

REPORT INFORMATION
  Report Type: Spontaneous
  Country: US (occurrence: None)
  Receive Date: 20150120
  Receipt Date: 20150120
  Transmission Date: 20150721
  Serious: No
  Sender: FDA-Public Use
  Company Number: None

PATIENT
  Age: 62 Year
  Sex: Female
  Weight: 65.32 kg

DRUGS (1)
  1. AZITHROMYCIN [Suspect]
     Active Substance: AZITHROMYCIN ANHYDROUS
     Indication: INFECTION
     Dosage: 12 CC DAILY TAKEN BY MOUTH
     Route: 048

REACTIONS (7)
  - Palpitations [None]
  - Constipation [None]
  - Dizziness [None]
  - Mood altered [None]
  - Tinnitus [None]
  - Insomnia [None]
  - Pruritus [None]

NARRATIVE: CASE EVENT DATE: 20150107
